FAERS Safety Report 16164423 (Version 1)
Quarter: 2019Q2

REPORT INFORMATION
  Report Type: Spontaneous
  Country: GB (occurrence: GB)
  Receive Date: 20190405
  Receipt Date: 20190405
  Transmission Date: 20190711
  Serious: Yes (Hospitalization)
  Sender: FDA-Public Use
  Company Number: GB-SA-2019SA093664

PATIENT

DRUGS (5)
  1. TOUJEO [Suspect]
     Active Substance: INSULIN GLARGINE
     Dosage: AS PER BLOOD GLUCOSE MONITORING
     Route: 064
  2. NOVORAPID [Suspect]
     Active Substance: INSULIN ASPART
     Dosage: AS PER BLOOD GLUCOSE MONITORING.
     Route: 064
  3. LANTUS [Suspect]
     Active Substance: INSULIN GLARGINE
     Dosage: AS PER BLOOD GLUCOSE MONITORING.
     Route: 064
  4. FOLIC ACID. [Concomitant]
     Active Substance: FOLIC ACID
     Dosage: 5 MG, UNK
     Route: 064
  5. BISOPROLOL SALT NOT SPECIFIED [Suspect]
     Active Substance: BISOPROLOL
     Dosage: 3.75 MG, QD
     Route: 064

REACTIONS (7)
  - Premature baby [Recovered/Resolved with Sequelae]
  - Arrhythmia neonatal [Not Recovered/Not Resolved]
  - Foetal exposure during pregnancy [Unknown]
  - Jaundice neonatal [Recovered/Resolved]
  - Foetal growth restriction [Not Recovered/Not Resolved]
  - Neonatal respiratory distress syndrome [Recovered/Resolved]
  - Necrotising enterocolitis neonatal [Recovered/Resolved]
